FAERS Safety Report 6595169-7 (Version None)
Quarter: 2010Q1

REPORT INFORMATION
  Report Type: 
  Country: None (occurrence: None)
  Receive Date: 20100222
  Receipt Date: 20100212
  Transmission Date: 20100710
  Serious: Yes (Hospitalization, Disabling, Other)
  Sender: FDA-Public Use
  Company Number: US-MERCK-0808USA04223

PATIENT
  Age: 57 Year
  Sex: Female
  Weight: 89 kg

DRUGS (5)
  1. FOSAMAX [Suspect]
     Indication: OSTEOPOROSIS
     Route: 048
     Dates: start: 20030701, end: 20060101
  2. LOTREL [Concomitant]
     Indication: HYPERTENSION
     Route: 048
     Dates: start: 20020101
  3. CLARINEX [Concomitant]
     Route: 048
  4. CENTRUM [Concomitant]
     Route: 065
  5. CALCIUM (UNSPECIFIED) [Concomitant]
     Route: 065

REACTIONS (13)
  - ABSCESS ORAL [None]
  - ADENOMA BENIGN [None]
  - DEAFNESS UNILATERAL [None]
  - DRY MOUTH [None]
  - EUSTACHIAN TUBE DYSFUNCTION [None]
  - JAW DISORDER [None]
  - MUCOSAL INFLAMMATION [None]
  - NASAL SINUS CANCER [None]
  - ORAL CAVITY FISTULA [None]
  - ORAL INFECTION [None]
  - OTITIS MEDIA [None]
  - RHINORRHOEA [None]
  - WEIGHT DECREASED [None]
